FAERS Safety Report 12525918 (Version 2)
Quarter: 2017Q1

REPORT INFORMATION
  Report Type: Spontaneous
  Country: DK (occurrence: DK)
  Receive Date: 20160705
  Receipt Date: 20170121
  Transmission Date: 20170428
  Serious: Yes (Hospitalization)
  Sender: FDA-Public Use
  Company Number: DK-ACCORD-042125

PATIENT
  Age: 73 Year
  Sex: Female

DRUGS (5)
  1. METOPROLOL. [Concomitant]
     Active Substance: METOPROLOL
  2. DONEPEZIL ACCORD [Suspect]
     Active Substance: DONEPEZIL
     Indication: DEMENTIA ALZHEIMER^S TYPE
     Dosage: RECEIVED 5 MG FROM 18-APR-2016, THEN DOSE INCREASED TO 10 MG BETWEEN 10-JUN-2016 TO 13-JUN-2016.
     Route: 048
     Dates: end: 20160622
  3. SIMVASTATIN. [Concomitant]
     Active Substance: SIMVASTATIN
     Indication: HYPERCHOLESTEROLAEMIA
  4. ENALAPRIL [Concomitant]
     Active Substance: ENALAPRIL
  5. ALENDRONIC ACID [Concomitant]
     Active Substance: ALENDRONIC ACID
     Indication: OSTEOPOROSIS

REACTIONS (9)
  - Mood swings [Recovered/Resolved]
  - Anger [Recovered/Resolved]
  - Paranoia [Recovered/Resolved]
  - Hallucination, auditory [Recovered/Resolved]
  - Crying [Recovered/Resolved]
  - Hallucination [Recovered/Resolved]
  - Delirium [Recovered/Resolved]
  - Psychotic disorder [Recovered/Resolved]
  - Agitation [Recovered/Resolved]

NARRATIVE: CASE EVENT DATE: 201606
